FAERS Safety Report 22071219 (Version 1)
Quarter: 2023Q1

REPORT INFORMATION
  Report Type: Report from Study
  Country: IT (occurrence: IT)
  Receive Date: 20230307
  Receipt Date: 20230307
  Transmission Date: 20230418
  Serious: Yes (Other)
  Sender: FDA-Public Use
  Company Number: IT-002147023-NVSC2023IT049987

PATIENT
  Age: 80 Year
  Sex: Female

DRUGS (6)
  1. RIBOCICLIB [Suspect]
     Active Substance: RIBOCICLIB
     Indication: Breast cancer
     Dosage: 600 MG, QD
     Route: 048
     Dates: start: 20211104
  2. RIBOCICLIB [Suspect]
     Active Substance: RIBOCICLIB
     Dosage: STARTED II CYCLE AT DOSE OF 600 MG
     Route: 065
  3. RIBOCICLIB [Suspect]
     Active Substance: RIBOCICLIB
     Dosage: STARTED 3RD CYCLE AT DOSE OF 400 MG UNTIL DAY 21
     Route: 065
  4. RIBOCICLIB [Suspect]
     Active Substance: RIBOCICLIB
     Dosage: STARTED 4 CYCLE AT DOSE OF 400 MG
     Route: 065
  5. RIBOCICLIB [Suspect]
     Active Substance: RIBOCICLIB
     Dosage: STARTED 5 CYCLE AT DOSE OF 200 MG
     Route: 065
     Dates: end: 202302
  6. LETROZOLE [Suspect]
     Active Substance: LETROZOLE
     Indication: Product used for unknown indication
     Dosage: UNK
     Route: 065

REACTIONS (3)
  - Neutropenia [Recovered/Resolved]
  - Breast cancer [Unknown]
  - Malignant neoplasm progression [Unknown]

NARRATIVE: CASE EVENT DATE: 20211101
